FAERS Safety Report 19682709 (Version 1)
Quarter: 2021Q3

REPORT INFORMATION
  Report Type: Report from Study
  Country: FR (occurrence: FR)
  Receive Date: 20210810
  Receipt Date: 20210810
  Transmission Date: 20211014
  Serious: Yes (Death, Life-Threatening, Other)
  Sender: FDA-Public Use
  Company Number: FR-TAKEDA-FR201820369

PATIENT
  Sex: Male
  Weight: 69.5 kg

DRUGS (7)
  1. TEDUGLUTIDE [Suspect]
     Active Substance: TEDUGLUTIDE
     Indication: SHORT-BOWEL SYNDROME
     Dosage: STUDY DRUG NOT ADMINISTERED
     Route: 065
     Dates: start: 20170201
  2. TEDUGLUTIDE [Suspect]
     Active Substance: TEDUGLUTIDE
     Indication: SHORT-BOWEL SYNDROME
     Dosage: STUDY DRUG NOT ADMINISTERED
     Route: 065
     Dates: start: 20170201
  3. IMOVANE [Concomitant]
     Active Substance: ZOPICLONE
     Indication: INSOMNIA
  4. CLINUTREN HP ENERGY [Concomitant]
     Indication: NUTRITIONAL SUPPLEMENTATION
  5. TEDUGLUTIDE [Suspect]
     Active Substance: TEDUGLUTIDE
     Indication: SHORT-BOWEL SYNDROME
     Dosage: STUDY DRUG NOT ADMINISTERED
     Route: 065
     Dates: start: 20170201
  6. TEDUGLUTIDE [Suspect]
     Active Substance: TEDUGLUTIDE
     Indication: SHORT-BOWEL SYNDROME
     Dosage: STUDY DRUG NOT ADMINISTERED
     Route: 065
     Dates: start: 20170201
  7. DONORMYL [Concomitant]
     Indication: INSOMNIA

REACTIONS (1)
  - Completed suicide [Fatal]

NARRATIVE: CASE EVENT DATE: 20180522
